FAERS Safety Report 6062857-0 (Version None)
Quarter: 2009Q1

REPORT INFORMATION
  Report Type: 
  Country: None (occurrence: None)
  Receive Date: 20090202
  Receipt Date: 20090202
  Transmission Date: 20090719
  Serious: Yes (Hospitalization)
  Sender: FDA-Public Use
  Company Number: None

PATIENT
  Age: 30 Year
  Sex: Female
  Weight: 61.2356 kg

DRUGS (1)
  1. LEVAQUIN [Suspect]
     Indication: CYSTITIS
     Dosage: 500 MG 1 X DAILY PO
     Route: 048
     Dates: start: 20090128, end: 20090130

REACTIONS (8)
  - CONFUSIONAL STATE [None]
  - FATIGUE [None]
  - HYPOAESTHESIA [None]
  - IMPAIRED DRIVING ABILITY [None]
  - INSOMNIA [None]
  - MYALGIA [None]
  - NIGHT SWEATS [None]
  - PANIC ATTACK [None]
